FAERS Safety Report 4277372-4 (Version None)
Quarter: 2004Q1

REPORT INFORMATION
  Report Type: 
  Country: None (occurrence: None)
  Receive Date: 20040122
  Receipt Date: 20040116
  Transmission Date: 20041129
  Serious: Yes (Hospitalization)
  Sender: FDA-Public Use
  Company Number: 200410139EU

PATIENT
  Sex: 0

DRUGS (1)
  1. TAXOTERE [Suspect]
     Indication: BREAST CANCER METASTATIC
     Route: 042

REACTIONS (4)
  - ASCITES [None]
  - BREAST CANCER [None]
  - MALIGNANT NEOPLASM PROGRESSION [None]
  - PORTAL HYPERTENSION [None]
